FAERS Safety Report 19777690 (Version 3)
Quarter: 2021Q4

REPORT INFORMATION
  Report Type: Spontaneous
  Country: US (occurrence: US)
  Receive Date: 20210902
  Receipt Date: 20211210
  Transmission Date: 20220304
  Serious: Yes (Other)
  Sender: FDA-Public Use
  Company Number: US-SA-SAC20210831000304

PATIENT
  Age: 50 Year
  Sex: Female
  Weight: 45 kg

DRUGS (11)
  1. AUBAGIO [Suspect]
     Active Substance: TERIFLUNOMIDE
     Indication: Migraine
     Dosage: 14 MG, QD
     Route: 048
     Dates: start: 202009
  2. AUBAGIO [Suspect]
     Active Substance: TERIFLUNOMIDE
     Indication: Multiple sclerosis
  3. AUBAGIO [Suspect]
     Active Substance: TERIFLUNOMIDE
     Indication: Anxiety disorder
  4. RYBELSUS [Concomitant]
     Active Substance: SEMAGLUTIDE
  5. XANAX [Concomitant]
     Active Substance: ALPRAZOLAM
  6. RIZATRIPTAN [Concomitant]
     Active Substance: RIZATRIPTAN
     Indication: Migraine
  7. MENAQUINONE 6 [Concomitant]
     Active Substance: MENAQUINONE 6
  8. VITAMIN D3 [Concomitant]
     Active Substance: CHOLECALCIFEROL
  9. ARMOUR THYROID [Concomitant]
     Active Substance: THYROID, PORCINE
     Dosage: 14 MG
  10. MAGNESIUM [Concomitant]
     Active Substance: MAGNESIUM
  11. H.P. ACTHAR [Concomitant]
     Active Substance: CORTICOTROPIN

REACTIONS (8)
  - Multiple sclerosis relapse [Unknown]
  - Urinary incontinence [Unknown]
  - Vitamin D deficiency [Unknown]
  - Fatigue [Unknown]
  - Back pain [Unknown]
  - Urticaria [Unknown]
  - COVID-19 [Unknown]
  - Product use in unapproved indication [Unknown]

NARRATIVE: CASE EVENT DATE: 20200901
